FAERS Safety Report 12517004 (Version 1)
Quarter: 2016Q2

REPORT INFORMATION
  Report Type: Spontaneous
  Country: US (occurrence: US)
  Receive Date: 20160630
  Receipt Date: 20160630
  Transmission Date: 20160815
  Serious: No
  Sender: FDA-Public Use
  Company Number: US-009507513-1606USA011362

PATIENT
  Age: 81 Year
  Sex: Female
  Weight: 54.42 kg

DRUGS (4)
  1. MINERALS (UNSPECIFIED) [Concomitant]
     Dosage: UNK
  2. THYROID [Concomitant]
     Active Substance: LEVOTHYROXINE\LIOTHYRONINE
     Dosage: 65 MG, ONCE DAILY
  3. BELSOMRA [Suspect]
     Active Substance: SUVOREXANT
     Indication: SLEEP DISORDER
     Dosage: 10MG ONCE (ALSO REPORTED AS ONCE DAILY)
     Route: 048
     Dates: start: 201603, end: 2016
  4. VITAMINS (UNSPECIFIED) [Concomitant]
     Active Substance: VITAMINS
     Dosage: UNK

REACTIONS (1)
  - Drug ineffective [Unknown]

NARRATIVE: CASE EVENT DATE: 2016
